FAERS Safety Report 7994623-0 (Version None)
Quarter: 2011Q4

REPORT INFORMATION
  Report Type: 
  Country: None (occurrence: None)
  Receive Date: 20111220
  Receipt Date: 20111216
  Transmission Date: 20120403
  Serious: Yes (Other)
  Sender: FDA-Public Use
  Company Number: CA-ABBOTT-11P-028-0849581-00

PATIENT
  Sex: Female
  Weight: 56.75 kg

DRUGS (4)
  1. CORTISONE ACETATE [Concomitant]
     Indication: CROHN'S DISEASE
     Route: 048
     Dates: start: 20100501, end: 20101226
  2. VENTOLIN [Concomitant]
     Indication: ASTHMA
     Route: 055
     Dates: start: 20010101
  3. CORTICOSTEROIDS [Suspect]
  4. HUMIRA [Suspect]
     Indication: CROHN'S DISEASE
     Route: 058
     Dates: start: 20100901, end: 20101215

REACTIONS (12)
  - SENSATION OF HEAVINESS [None]
  - ABDOMINAL PAIN [None]
  - PAIN [None]
  - ABDOMINAL DISTENSION [None]
  - ADVERSE DRUG REACTION [None]
  - ARTHRALGIA [None]
  - INTESTINAL OBSTRUCTION [None]
  - CROHN'S DISEASE [None]
  - ASTHENIA [None]
  - DRUG INEFFECTIVE [None]
  - FATIGUE [None]
  - MYOPATHY [None]
